FAERS Safety Report 24038962 (Version 2)
Quarter: 2024Q3

REPORT INFORMATION
  Report Type: Report from Study
  Country: US (occurrence: US)
  Receive Date: 20240702
  Receipt Date: 20240830
  Transmission Date: 20241016
  Serious: Yes (Hospitalization)
  Sender: ABBVIE
  Company Number: US-ABBVIE-5821460

PATIENT
  Sex: Female

DRUGS (1)
  1. RINVOQ [Suspect]
     Active Substance: UPADACITINIB
     Indication: Rheumatoid arthritis
     Route: 048
     Dates: start: 20220301

REACTIONS (5)
  - Pneumonitis [Unknown]
  - Accident at work [Recovering/Resolving]
  - Hypertension [Recovering/Resolving]
  - Lung disorder [Recovering/Resolving]
  - Pneumonia [Recovering/Resolving]
